FAERS Safety Report 10645477 (Version 1)
Quarter: 2014Q4

REPORT INFORMATION
  Report Type: Spontaneous
  Country: US (occurrence: None)
  Receive Date: 20141210
  Receipt Date: 20141210
  Transmission Date: 20150529
  Serious: Yes (Other)
  Sender: FDA-Public Use
  Company Number: None

PATIENT
  Age: 37 Year
  Sex: Female
  Weight: 71.67 kg

DRUGS (1)
  1. METRONIDAZOLE. [Suspect]
     Active Substance: METRONIDAZOLE
     Indication: VAGINITIS BACTERIAL
     Dosage: 500
     Route: 048
     Dates: start: 20141120, end: 20141126

REACTIONS (4)
  - Anorectal discomfort [None]
  - Vulvovaginal burning sensation [None]
  - Depression [None]
  - Unevaluable event [None]

NARRATIVE: CASE EVENT DATE: 20141209
